FAERS Safety Report 8974671 (Version 1)
Quarter: 2012Q4

REPORT INFORMATION
  Report Type: Spontaneous
  Country: US (occurrence: None)
  Receive Date: 20121217
  Receipt Date: 20121217
  Transmission Date: 20130627
  Serious: Yes (Other)
  Sender: FDA-Public Use
  Company Number: None

PATIENT
  Age: 56 Year
  Sex: Female
  Weight: 64.41 kg

DRUGS (1)
  1. SUPRAX [Suspect]
     Indication: BRONCHIAL INFECTION
     Dosage: 400mg tablet 1 per day po
     Route: 048
     Dates: start: 20121212, end: 20121213

REACTIONS (2)
  - Flatulence [None]
  - Diarrhoea [None]
